FAERS Safety Report 7206033-4 (Version None)
Quarter: 2010Q4

REPORT INFORMATION
  Report Type: 
  Country: None (occurrence: None)
  Receive Date: 20101220
  Receipt Date: 20101210
  Transmission Date: 20110411
  Serious: Yes (Life-Threatening, Hospitalization)
  Sender: FDA-Public Use
  Company Number: 2010MA005211

PATIENT
  Age: 72 Year
  Sex: Female

DRUGS (8)
  1. METFORMIN HYDROCHLORIDE [Suspect]
     Indication: DIABETES MELLITUS
     Dosage: 1000 MG; TID; PO
     Route: 048
     Dates: end: 20101121
  2. ALLOPURINOL [Concomitant]
  3. HJERTEMAGNYL [Concomitant]
  4. PERSANTIN [Concomitant]
  5. GLIMEPIRIDE [Concomitant]
  6. FURIX [Concomitant]
  7. CORODIL [Concomitant]
  8. LANSOPRAZOLE [Concomitant]

REACTIONS (3)
  - DEHYDRATION [None]
  - DIARRHOEA [None]
  - METABOLIC ACIDOSIS [None]
